FAERS Safety Report 6406494-4 (Version None)
Quarter: 2009Q4

REPORT INFORMATION
  Report Type: 
  Country: None (occurrence: None)
  Receive Date: 20091015
  Receipt Date: 20091006
  Transmission Date: 20100525
  Serious: Yes (Hospitalization)
  Sender: FDA-Public Use
  Company Number: 2009US003712

PATIENT
  Age: 35 Year
  Sex: Male

DRUGS (1)
  1. LEXISCAN [Suspect]
     Indication: SCAN MYOCARDIAL PERFUSION
     Dosage: 0.4 MG, TOTAL DOSE, IV BOLUS
     Route: 040
     Dates: start: 20091005, end: 20091005

REACTIONS (2)
  - BRONCHOSPASM [None]
  - PRURITUS [None]
